FAERS Safety Report 9834457 (Version 2)
Quarter: 2014Q1

REPORT INFORMATION
  Report Type: Spontaneous
  Country: US (occurrence: US)
  Receive Date: 20140122
  Receipt Date: 20140326
  Transmission Date: 20141002
  Serious: Yes (Life-Threatening, Hospitalization)
  Sender: FDA-Public Use
  Company Number: US-SA-2014SA007236

PATIENT
  Age: 56 Year
  Sex: Female
  Weight: 82 kg

DRUGS (10)
  1. HECTOROL [Suspect]
     Indication: HYPERPARATHYROIDISM SECONDARY
     Dosage: 4 MCG EVERY TREATMENT
     Route: 042
     Dates: start: 20140103, end: 20140103
  2. HECTOROL [Suspect]
     Indication: HYPERPARATHYROIDISM SECONDARY
     Dosage: 4 MCG EVERY TREATMENT
     Route: 042
     Dates: start: 20140106, end: 20140106
  3. ERYTHROPOIETIN [Concomitant]
     Dosage: DOSE:18000 UNIT(S)
     Route: 042
  4. LASIX [Concomitant]
  5. ISOSORBIDE DINITRATE [Concomitant]
  6. COREG [Concomitant]
     Route: 048
  7. LEVAQUIN [Concomitant]
     Dosage: Q48H
     Route: 048
  8. BENAZEPRIL [Concomitant]
  9. LEVOTHYROXINE [Concomitant]
     Dosage: QAM
     Route: 048
  10. PREDNISONE [Concomitant]
     Route: 048

REACTIONS (15)
  - Cardio-respiratory arrest [Recovered/Resolved]
  - Unresponsive to stimuli [Recovered/Resolved]
  - Pulse absent [Recovered/Resolved]
  - Dyspnoea [Unknown]
  - Apnoea [Recovered/Resolved]
  - Syncope [Recovered/Resolved]
  - Lethargy [Recovered/Resolved]
  - Agitation [Recovered/Resolved]
  - Confusional state [Recovered/Resolved]
  - Anaphylactic reaction [Unknown]
  - Acute pulmonary oedema [Recovered/Resolved]
  - Wheezing [Unknown]
  - Body temperature increased [Unknown]
  - White blood cell count decreased [Unknown]
  - Blood glucose increased [Unknown]
